FAERS Safety Report 9897869 (Version 2)
Quarter: 2014Q1

REPORT INFORMATION
  Report Type: Spontaneous
  Country: US (occurrence: US)
  Receive Date: 20140214
  Receipt Date: 20140218
  Transmission Date: 20141002
  Serious: No
  Sender: FDA-Public Use
  Company Number: US-PFIZER INC-2014039990

PATIENT
  Age: 61 Year
  Sex: Male

DRUGS (1)
  1. INLYTA [Suspect]
     Indication: RENAL CANCER
     Dosage: 5 MG, 2X/DAY
     Dates: start: 20140116

REACTIONS (8)
  - Dysphonia [Unknown]
  - Blood pressure increased [Unknown]
  - Hypothyroidism [Unknown]
  - Hepatic enzyme increased [Unknown]
  - Bone pain [Unknown]
  - Hearing impaired [Unknown]
  - Weight decreased [Unknown]
  - Hypertension [Unknown]
